FAERS Safety Report 6837061-6 (Version None)
Quarter: 2010Q3

REPORT INFORMATION
  Report Type: 
  Country: None (occurrence: None)
  Receive Date: 20100713
  Receipt Date: 20070501
  Transmission Date: 20110219
  Serious: No
  Sender: FDA-Public Use
  Company Number: US-PFIZER INC-2007036711

PATIENT
  Age: 58 Year
  Sex: Female
  Weight: 50.454 kg

DRUGS (2)
  1. CHANTIX [Suspect]
     Indication: SMOKING CESSATION THERAPY
     Dates: start: 20070401
  2. VITAMINS [Concomitant]

REACTIONS (2)
  - MIGRAINE [None]
  - PAROSMIA [None]
